FAERS Safety Report 6114831-3 (Version None)
Quarter: 2009Q1

REPORT INFORMATION
  Report Type: 
  Country: None (occurrence: None)
  Receive Date: 20090313
  Receipt Date: 20090305
  Transmission Date: 20090719
  Serious: Yes (Other)
  Sender: FDA-Public Use
  Company Number: NL-PFIZER INC-2009180181

PATIENT

DRUGS (2)
  1. LIPITOR [Suspect]
     Dosage: 40 MG, UNK
     Route: 048
  2. DRUG, UNSPECIFIED [Concomitant]
     Indication: OSTEOPOROSIS
     Dosage: UNK

REACTIONS (7)
  - ARTHRALGIA [None]
  - BLOOD CHOLESTEROL INCREASED [None]
  - GASTROINTESTINAL OEDEMA [None]
  - LIP SWELLING [None]
  - MYALGIA [None]
  - RASH PRURITIC [None]
  - SWOLLEN TONGUE [None]
